FAERS Safety Report 14643349 (Version 1)
Quarter: 2018Q1

REPORT INFORMATION
  Report Type: Spontaneous
  Country: IE (occurrence: IE)
  Receive Date: 20180315
  Receipt Date: 20180315
  Transmission Date: 20180509
  Serious: Yes (Disabling)
  Sender: FDA-Public Use
  Company Number: IE-NOVOPROD-590072

PATIENT
  Age: 70 Year
  Sex: Female

DRUGS (5)
  1. VICTOZA [Suspect]
     Active Substance: LIRAGLUTIDE
     Dosage: 1.2 MG, QD
     Route: 058
     Dates: end: 20180212
  2. VATAN [Concomitant]
     Active Substance: VALSARTAN
     Indication: HYPERTENSION
     Dosage: DURATION OF DRUG ADMINISTRATION: 3 YEARS. DOSAGE TEXT 160MG/12.5MG FILM COATED TABLET
     Route: 065
     Dates: start: 20141218, end: 20180215
  3. KAMIREN [Concomitant]
     Indication: HYPERTENSION
     Dosage: DOXAZOSIN MESILATE 4MG PR TABLET; DURATION OF DRUG ADMIN:3 YEARS
     Dates: start: 20141218, end: 20180215
  4. VICTOZA [Suspect]
     Active Substance: LIRAGLUTIDE
     Indication: TYPE 2 DIABETES MELLITUS
     Dosage: 0.6 MG, QD
     Route: 058
     Dates: start: 20171019
  5. ROSUVASTATIN ACTAVIS [Concomitant]
     Active Substance: ROSUVASTATIN
     Indication: BLOOD CHOLESTEROL INCREASED
     Dosage: DURATION OF DRUG ADMINISTRATION: 5 YEARS, FILM-COATED TABLETS
     Route: 065
     Dates: start: 20130710, end: 20180215

REACTIONS (4)
  - Rash generalised [Unknown]
  - Rash pruritic [Unknown]
  - Eructation [Unknown]
  - Dysgeusia [Unknown]

NARRATIVE: CASE EVENT DATE: 20180122
